FAERS Safety Report 11392249 (Version 1)
Quarter: 2015Q3

REPORT INFORMATION
  Report Type: Spontaneous
  Country: BZ (occurrence: BZ)
  Receive Date: 20150818
  Receipt Date: 20150818
  Transmission Date: 20151125
  Serious: Yes (Life-Threatening, Hospitalization, Disabling, Other)
  Sender: FDA-Public Use
  Company Number: BZ-BAYER-2015-397419

PATIENT
  Sex: Female

DRUGS (1)
  1. NAPROXEN SODIUM ({= 220 MG) [Suspect]
     Active Substance: NAPROXEN SODIUM
     Indication: BACK PAIN

REACTIONS (7)
  - Dizziness [Recovering/Resolving]
  - Feeling abnormal [None]
  - Paraesthesia [Recovering/Resolving]
  - Hypertension [Recovering/Resolving]
  - Migraine [Recovering/Resolving]
  - Urticaria [Not Recovered/Not Resolved]
  - Pruritus generalised [Recovering/Resolving]
